FAERS Safety Report 7787795-4 (Version None)
Quarter: 2011Q3

REPORT INFORMATION
  Report Type: 
  Country: None (occurrence: None)
  Receive Date: 20110930
  Receipt Date: 20110921
  Transmission Date: 20111222
  Serious: Yes (Hospitalization)
  Sender: FDA-Public Use
  Company Number: NL-BRISTOL-MYERS SQUIBB COMPANY-16107013

PATIENT
  Age: 68 Year
  Sex: Male

DRUGS (2)
  1. CISPLATIN [Suspect]
     Indication: NON-SMALL CELL LUNG CANCER
     Dosage: RECENT DOSE ON 5APR2011 TOTAL CUMULATIVE DOSE:288MG
     Route: 042
     Dates: start: 20110303
  2. CETUXIMAB [Suspect]
     Indication: NON-SMALL CELL LUNG CANCER
     Dosage: RECENT DOSE ON 31MAR2011 TOTAL CUMULATIVE DOSE:3300MG
     Route: 042
     Dates: start: 20110224

REACTIONS (1)
  - DYSPHAGIA [None]
